FAERS Safety Report 12051535 (Version 1)
Quarter: 2016Q1

REPORT INFORMATION
  Report Type: Report from Study
  Country: US (occurrence: US)
  Receive Date: 20160209
  Receipt Date: 20160209
  Transmission Date: 20160526
  Serious: No
  Sender: FDA-Public Use
  Company Number: US-ABBVIE-15P-163-1437688-00

PATIENT
  Age: 49 Year
  Sex: Male
  Weight: 83.99 kg

DRUGS (1)
  1. HUMIRA [Suspect]
     Active Substance: ADALIMUMAB
     Indication: CROHN^S DISEASE
     Route: 050
     Dates: start: 2012

REACTIONS (6)
  - Abdominal pain [Recovered/Resolved]
  - Asthenia [Recovered/Resolved]
  - Gastric ulcer [Recovering/Resolving]
  - Injection site reaction [Recovered/Resolved]
  - Joint swelling [Not Recovered/Not Resolved]
  - Weight decreased [Recovered/Resolved]

NARRATIVE: CASE EVENT DATE: 201503
